FAERS Safety Report 9305042 (Version 2)
Quarter: 2013Q2

REPORT INFORMATION
  Report Type: Spontaneous
  Country: US (occurrence: US)
  Receive Date: 20130523
  Receipt Date: 20130626
  Transmission Date: 20140414
  Serious: Yes (Other)
  Sender: FDA-Public Use
  Company Number: US-009507513-1305USA006760

PATIENT
  Sex: Female
  Weight: 186.4 kg

DRUGS (2)
  1. NEXPLANON [Suspect]
     Indication: CONTRACEPTION
     Dosage: UNK
     Route: 059
     Dates: start: 201209, end: 20130508
  2. NEXPLANON [Suspect]
     Indication: MENORRHAGIA

REACTIONS (3)
  - Device breakage [Recovered/Resolved]
  - Implant site pain [Recovered/Resolved]
  - Implant site irritation [Recovered/Resolved]
